FAERS Safety Report 7275537-0 (Version None)
Quarter: 2011Q1

REPORT INFORMATION
  Report Type: 
  Country: None (occurrence: None)
  Receive Date: 20110204
  Receipt Date: 20110125
  Transmission Date: 20110831
  Serious: Yes (Hospitalization)
  Sender: FDA-Public Use
  Company Number: FR-JNJFOC-20110104557

PATIENT
  Age: 50 Year
  Sex: Female
  Weight: 54 kg

DRUGS (3)
  1. ENTERAL NUTRITION [Concomitant]
     Indication: CROHN'S DISEASE
  2. UVEDOSE [Concomitant]
     Indication: VITAMIN D DEFICIENCY
  3. REMICADE [Suspect]
     Indication: CROHN'S DISEASE
     Route: 042

REACTIONS (1)
  - PARATHYROID TUMOUR BENIGN [None]
